FAERS Safety Report 4491372-0 (Version None)
Quarter: 2004Q4

REPORT INFORMATION
  Report Type: 
  Country: None (occurrence: None)
  Receive Date: 20041029
  Receipt Date: 20041013
  Transmission Date: 20050328
  Serious: Yes (Hospitalization)
  Sender: FDA-Public Use
  Company Number: 9074

PATIENT
  Age: 59 Year
  Sex: Female

DRUGS (5)
  1. METHOTREXATE [Suspect]
  2. CIPROFLOXACIN [Suspect]
  3. ENBREL [Suspect]
     Indication: PSORIATIC ARTHROPATHY
     Dosage: 25 MG 2/WK SC
     Route: 058
     Dates: start: 20021003
  4. ENBREL [Suspect]
     Indication: PSORIATIC ARTHROPATHY
     Dosage: 50 MG WEEKLY SC
     Route: 058
  5. CELEBREX [Concomitant]

REACTIONS (2)
  - DRUG HYPERSENSITIVITY [None]
  - OVARIAN MASS [None]
